FAERS Safety Report 7171224-8 (Version None)
Quarter: 2010Q4

REPORT INFORMATION
  Report Type: 
  Country: None (occurrence: None)
  Receive Date: 20101217
  Receipt Date: 20101206
  Transmission Date: 20110411
  Serious: Yes (Other)
  Sender: FDA-Public Use
  Company Number: FR-GILEAD-2010-0034218

PATIENT
  Sex: Female
  Weight: 85 kg

DRUGS (3)
  1. TRUVADA [Suspect]
     Indication: HIV INFECTION
     Dates: start: 20080221
  2. SUSTIVA [Concomitant]
     Dates: end: 20080403
  3. BACTRIM [Concomitant]

REACTIONS (3)
  - FOETAL DISTRESS SYNDROME [None]
  - PREGNANCY [None]
  - URINARY TRACT INFECTION [None]
